FAERS Safety Report 8523194-5 (Version None)
Quarter: 2012Q3

REPORT INFORMATION
  Report Type: 
  Country: None (occurrence: None)
  Receive Date: 20120713
  Receipt Date: 20120713
  Transmission Date: 20120928
  Serious: Yes (Hospitalization)
  Sender: FDA-Public Use
  Company Number: None

PATIENT
  Age: 67 Year
  Sex: Male
  Weight: 88.6 kg

DRUGS (1)
  1. PROPOFOL [Suspect]
     Indication: SEDATION
     Dosage: 25.5 ML/HR TITRATE IV DRIP
     Route: 041
     Dates: start: 20120623, end: 20120630

REACTIONS (4)
  - RHABDOMYOLYSIS [None]
  - PROPOFOL INFUSION SYNDROME [None]
  - METABOLIC ACIDOSIS [None]
  - HYPERKALAEMIA [None]
